FAERS Safety Report 19645675 (Version 1)
Quarter: 2021Q3

REPORT INFORMATION
  Report Type: Spontaneous
  Country: SE (occurrence: SE)
  Receive Date: 20210802
  Receipt Date: 20210802
  Transmission Date: 20211014
  Serious: Yes (Disabling)
  Sender: FDA-Public Use
  Company Number: NVSC2021SE169590

PATIENT
  Age: 52 Year
  Sex: Female
  Weight: 55 kg

DRUGS (2)
  1. TAFINLAR [Suspect]
     Active Substance: DABRAFENIB MESYLATE
     Indication: MALIGNANT MELANOMA
     Dosage: 100 MG, QD (50 MG 1X2)
     Route: 048
     Dates: start: 20200803, end: 20210115
  2. MEKINIST [Concomitant]
     Active Substance: TRAMETINIB DIMETHYL SULFOXIDE
     Indication: PRODUCT USED FOR UNKNOWN INDICATION
     Dosage: 0.5 MG, 3X1
     Route: 048
     Dates: start: 20200803, end: 20210115

REACTIONS (2)
  - Winged scapula [Not Recovered/Not Resolved]
  - Long thoracic nerve palsy [Not Recovered/Not Resolved]

NARRATIVE: CASE EVENT DATE: 2020
